FAERS Safety Report 6999200-6 (Version None)
Quarter: 2010Q3

REPORT INFORMATION
  Report Type: 
  Country: None (occurrence: None)
  Receive Date: 20100920
  Receipt Date: 20100415
  Transmission Date: 20110219
  Serious: Yes (Other)
  Sender: FDA-Public Use
  Company Number: US-ASTRAZENECA-2009UW20639

PATIENT
  Sex: Female

DRUGS (5)
  1. SEROQUEL [Suspect]
     Route: 048
     Dates: start: 20031222
  2. LORAZEPAM [Concomitant]
     Dates: start: 20031204
  3. RISPERDAL [Concomitant]
     Dates: start: 20031204
  4. WELLBUTRIN SR [Concomitant]
     Dates: start: 20031204
  5. LEVAQUIN [Concomitant]
     Dates: start: 20031222

REACTIONS (3)
  - DIABETES MELLITUS [None]
  - KETOACIDOSIS [None]
  - PANCREATITIS [None]
